FAERS Safety Report 25367463 (Version 3)
Quarter: 2025Q2

REPORT INFORMATION
  Report Type: Spontaneous
  Country: JP (occurrence: JP)
  Receive Date: 20250528
  Receipt Date: 20250630
  Transmission Date: 20250716
  Serious: Yes (Other)
  Sender: BOEHRINGER INGELHEIM
  Company Number: JP-NBI-2025-BI-011705

PATIENT
  Age: 78 Year
  Sex: Male

DRUGS (4)
  1. OFEV [Suspect]
     Active Substance: NINTEDANIB
     Indication: Interstitial lung disease
  2. MOUNJARO [Suspect]
     Active Substance: TIRZEPATIDE
     Indication: Blood glucose increased
     Dates: start: 202504
  3. MOUNJARO [Suspect]
     Active Substance: TIRZEPATIDE
     Dates: start: 20250430, end: 20250516
  4. MOUNJARO [Suspect]
     Active Substance: TIRZEPATIDE

REACTIONS (13)
  - Empyema [Recovering/Resolving]
  - Decreased appetite [Recovered/Resolved]
  - Hypophagia [Recovered/Resolved]
  - Weight decreased [Not Recovered/Not Resolved]
  - Faeces soft [Not Recovered/Not Resolved]
  - Asthenia [Recovered/Resolved]
  - Cough [Unknown]
  - Prostatic specific antigen increased [Recovering/Resolving]
  - Blood glucose increased [Not Recovered/Not Resolved]
  - Sputum increased [Recovering/Resolving]
  - Pyrexia [Recovered/Resolved]
  - Rhinorrhoea [Not Recovered/Not Resolved]
  - Increased viscosity of bronchial secretion [Not Recovered/Not Resolved]

NARRATIVE: CASE EVENT DATE: 20250401
